FAERS Safety Report 6615067-X (Version None)
Quarter: 2010Q1

REPORT INFORMATION
  Report Type: 
  Country: None (occurrence: None)
  Receive Date: 20100305
  Receipt Date: 20090702
  Transmission Date: 20100710
  Serious: No
  Sender: FDA-Public Use
  Company Number: JP-BAYER-200911951BYL

PATIENT
  Age: 45 Year
  Sex: Male
  Weight: 62 kg

DRUGS (9)
  1. NEXAVAR [Suspect]
     Indication: RENAL CELL CARCINOMA STAGE IV
     Dosage: UNIT DOSE: 200 MG
     Route: 048
     Dates: start: 20090121, end: 20090316
  2. SOL-MELCORT [Concomitant]
     Route: 041
  3. SOLDEM 3A [Concomitant]
     Dosage: UNIT DOSE: 500 ML
     Route: 041
  4. DIAINAMIX [Concomitant]
     Dosage: UNIT DOSE: 10 ML
     Route: 041
  5. ASCORBIC ACID [Concomitant]
     Dosage: UNIT DOSE: 500 MG
     Route: 041
  6. NEOPHAGEN [Concomitant]
     Dosage: UNIT DOSE: 20 ML
     Route: 042
  7. ALYPROST [Concomitant]
     Dosage: UNIT DOSE: 5 ?G
     Route: 041
  8. GLUCOSE [Concomitant]
     Dosage: UNIT DOSE: 5 %
     Route: 041
  9. ISOTONIC SODIUM CHLORIDE SOLUTION [Concomitant]
     Dosage: UNIT DOSE: 100 ML
     Route: 041

REACTIONS (1)
  - LIVER DISORDER [None]
